FAERS Safety Report 17375849 (Version 2)
Quarter: 2020Q1

REPORT INFORMATION
  Report Type: Spontaneous
  Country: ES (occurrence: ES)
  Receive Date: 20200206
  Receipt Date: 20200325
  Transmission Date: 20200409
  Serious: Yes (Other)
  Sender: FDA-Public Use
  Company Number: ES-SEATTLE GENETICS-2020SGN00735

PATIENT
  Age: 28 Year
  Sex: Male

DRUGS (17)
  1. BENDAMUSTINE                       /01263302/ [Suspect]
     Active Substance: BENDAMUSTINE HYDROCHLORIDE
     Dosage: 150 MILLIGRAM
     Route: 065
  2. BENDAMUSTINE                       /01263302/ [Suspect]
     Active Substance: BENDAMUSTINE HYDROCHLORIDE
     Dosage: 0.15 MILLIGRAM
     Route: 065
  3. BENDAMUSTINE                       /01263302/ [Suspect]
     Active Substance: BENDAMUSTINE HYDROCHLORIDE
     Dosage: 0.03 MILLIGRAM
     Route: 065
  4. BENDAMUSTINE                       /01263302/ [Suspect]
     Active Substance: BENDAMUSTINE HYDROCHLORIDE
     Dosage: 0.02 MILLIGRAM
     Route: 065
  5. ADCETRIS [Suspect]
     Active Substance: BRENTUXIMAB VEDOTIN
     Indication: NON-HODGKIN^S LYMPHOMA
     Dosage: 150 MILLIGRAM
     Route: 065
     Dates: start: 20180226
  6. BENDAMUSTINE                       /01263302/ [Suspect]
     Active Substance: BENDAMUSTINE HYDROCHLORIDE
     Indication: NON-HODGKIN^S LYMPHOMA
     Dosage: UNK
     Route: 065
     Dates: start: 20180226
  7. BENDAMUSTINE                       /01263302/ [Suspect]
     Active Substance: BENDAMUSTINE HYDROCHLORIDE
     Dosage: 6 MILLIGRAM
     Route: 065
  8. BENDAMUSTINE                       /01263302/ [Suspect]
     Active Substance: BENDAMUSTINE HYDROCHLORIDE
     Dosage: 12 MILLIGRAM
     Route: 065
  9. BENDAMUSTINE                       /01263302/ [Suspect]
     Active Substance: BENDAMUSTINE HYDROCHLORIDE
     Dosage: 3 MILLIGRAM
     Route: 065
  10. BENDAMUSTINE                       /01263302/ [Suspect]
     Active Substance: BENDAMUSTINE HYDROCHLORIDE
     Dosage: UNK
     Route: 065
  11. BENDAMUSTINE                       /01263302/ [Suspect]
     Active Substance: BENDAMUSTINE HYDROCHLORIDE
     Dosage: 1.5 MILLIGRAM
     Route: 065
  12. BENDAMUSTINE                       /01263302/ [Suspect]
     Active Substance: BENDAMUSTINE HYDROCHLORIDE
     Dosage: 15 MILLIGRAM
     Route: 065
  13. BENDAMUSTINE                       /01263302/ [Suspect]
     Active Substance: BENDAMUSTINE HYDROCHLORIDE
     Dosage: 111.32 MILLIGRAM
     Route: 065
  14. BENDAMUSTINE                       /01263302/ [Suspect]
     Active Substance: BENDAMUSTINE HYDROCHLORIDE
     Dosage: 0.01 MILLIGRAM
     Route: 065
  15. BENDAMUSTINE                       /01263302/ [Suspect]
     Active Substance: BENDAMUSTINE HYDROCHLORIDE
     Dosage: 0.6 MILLIGRAM
     Route: 065
  16. BENDAMUSTINE                       /01263302/ [Suspect]
     Active Substance: BENDAMUSTINE HYDROCHLORIDE
     Dosage: 0.8 MILLIGRAM
     Route: 065
  17. BENDAMUSTINE                       /01263302/ [Suspect]
     Active Substance: BENDAMUSTINE HYDROCHLORIDE
     Dosage: 0.3 MILLIGRAM
     Route: 065

REACTIONS (2)
  - Type IV hypersensitivity reaction [Recovered/Resolved]
  - Rash [Recovered/Resolved]

NARRATIVE: CASE EVENT DATE: 2018
